FAERS Safety Report 7121144-X (Version None)
Quarter: 2010Q4

REPORT INFORMATION
  Report Type: 
  Country: None (occurrence: None)
  Receive Date: 20101124
  Receipt Date: 20101109
  Transmission Date: 20110411
  Serious: Yes (Other)
  Sender: FDA-Public Use
  Company Number: PHHY2010JP76471

PATIENT
  Age: 75 Year
  Sex: Male

DRUGS (1)
  1. AFINITOR [Suspect]
     Indication: RENAL CELL CARCINOMA
     Dosage: 10 MG, DAILY
     Route: 048
     Dates: start: 20101026, end: 20101108

REACTIONS (3)
  - BLOOD CREATININE INCREASED [None]
  - RASH [None]
  - SKIN EXFOLIATION [None]
